FAERS Safety Report 8995301 (Version 4)
Quarter: 2013Q1

REPORT INFORMATION
  Report Type: Spontaneous
  Country: JP (occurrence: JP)
  Receive Date: 20130103
  Receipt Date: 20130131
  Transmission Date: 20140127
  Serious: Yes (Other)
  Sender: FDA-Public Use
  Company Number: JP-JNJFOC-20121212653

PATIENT
  Age: 48 Year
  Sex: Female

DRUGS (8)
  1. REMICADE [Suspect]
     Indication: COLITIS ULCERATIVE
     Route: 042
  2. ALL OTHER THERAPEUTIC PRODUCTS [Suspect]
     Indication: GASTROINTESTINAL DISORDER
     Route: 065
  3. ALL OTHER THERAPEUTIC PRODUCTS [Suspect]
     Indication: GASTROINTESTINAL DISORDER
     Route: 065
  4. ALL OTHER THERAPEUTIC PRODUCTS [Suspect]
     Indication: GASTROINTESTINAL DISORDER
     Route: 065
  5. ALL OTHER THERAPEUTIC PRODUCTS [Suspect]
     Indication: PSORIASIS
     Route: 065
  6. ALL OTHER THERAPEUTIC PRODUCTS [Suspect]
     Indication: PSORIASIS
     Route: 065
  7. ALL OTHER THERAPEUTIC PRODUCTS [Suspect]
     Indication: PSORIASIS
     Route: 065
  8. ANXIOLYTICS [Concomitant]
     Indication: PREMEDICATION
     Route: 065

REACTIONS (4)
  - Psoriasis [Recovering/Resolving]
  - Panic attack [Recovering/Resolving]
  - Loss of consciousness [Unknown]
  - Gastrointestinal disorder [Unknown]
